FAERS Safety Report 8510185-3 (Version None)
Quarter: 2012Q3

REPORT INFORMATION
  Report Type: 
  Country: None (occurrence: None)
  Receive Date: 20120713
  Receipt Date: 20120706
  Transmission Date: 20120928
  Serious: Yes (Other)
  Sender: FDA-Public Use
  Company Number: US-US-EMD SERONO, INC.-7146097

PATIENT
  Sex: Male
  Weight: 52 kg

DRUGS (3)
  1. SAIZEN [Suspect]
     Indication: BODY HEIGHT BELOW NORMAL
     Dates: start: 20120601
  2. LETROZOLE [Concomitant]
     Indication: GROWTH RETARDATION
     Dates: start: 20120601
  3. MULTI-VITAMINS [Concomitant]
     Indication: PRODUCT USED FOR UNKNOWN INDICATION

REACTIONS (3)
  - CARDIAC FLUTTER [None]
  - CHEST PAIN [None]
  - ARTHRALGIA [None]
